FAERS Safety Report 4280200-4 (Version None)
Quarter: 2004Q1

REPORT INFORMATION
  Report Type: 
  Country: None (occurrence: None)
  Receive Date: 20040126
  Receipt Date: 20040119
  Transmission Date: 20041129
  Serious: Yes (Hospitalization)
  Sender: FDA-Public Use
  Company Number: 2004-01-1263

PATIENT
  Age: 78 Year
  Sex: Male

DRUGS (7)
  1. QVAR 40 [Suspect]
     Indication: ASTHMA
     Dosage: 100 MCG QD ORAL AER INH
     Route: 055
     Dates: start: 20030704, end: 20031027
  2. THEOPHYLLINE [Concomitant]
  3. DEXTROMETHORPHAN HYDROBROMIDE [Concomitant]
  4. BROCIN-CODEINE [Concomitant]
  5. CLENBUTEROL HYDROCHLORIDE [Concomitant]
  6. SALMETEROL XINAFOATE [Concomitant]
  7. HERBS AND FLOWERS [Concomitant]

REACTIONS (1)
  - PNEUMONIA FUNGAL [None]
